FAERS Safety Report 8936125 (Version 1)
Quarter: 2012Q4

REPORT INFORMATION
  Report Type: Spontaneous
  Country: US (occurrence: None)
  Receive Date: 20121121
  Receipt Date: 20121121
  Transmission Date: 20130627
  Serious: No
  Sender: FDA-Public Use
  Company Number: JPI-P-026270

PATIENT
  Age: 45 Year
  Sex: Female

DRUGS (1)
  1. XYREM [Suspect]
     Indication: SLEEP DISTURBANCE
     Dosage: 5 gm (2.5 gm, 2 in 1 D), Oral
     Route: 048
     Dates: start: 20100225, end: 2010

REACTIONS (9)
  - Idiopathic thrombocytopenic purpura [None]
  - Blood pressure decreased [None]
  - Fall [None]
  - Nasopharyngitis [None]
  - Insomnia [None]
  - Condition aggravated [None]
  - Head injury [None]
  - Limb injury [None]
  - Back injury [None]
